FAERS Safety Report 23596588 (Version 1)
Quarter: 2024Q1

REPORT INFORMATION
  Report Type: Spontaneous
  Country: NO (occurrence: NO)
  Receive Date: 20240305
  Receipt Date: 20240305
  Transmission Date: 20240410
  Serious: Yes (Other)
  Sender: FDA-Public Use
  Company Number: NO-BAYER-2024A024128

PATIENT
  Age: 25 Year
  Sex: Female

DRUGS (1)
  1. LEVONORGESTREL [Suspect]
     Active Substance: LEVONORGESTREL
     Indication: Endometriosis
     Dosage: TIME INTERVAL: AS NECESSARY
     Route: 015

REACTIONS (3)
  - Pain in extremity [Unknown]
  - Off label use of device [Unknown]
  - Device use issue [Unknown]
